FAERS Safety Report 9885558 (Version 3)
Quarter: 2014Q1

REPORT INFORMATION
  Report Type: Spontaneous
  Country: FR (occurrence: FR)
  Receive Date: 20140210
  Receipt Date: 20140331
  Transmission Date: 20141002
  Serious: Yes (Life-Threatening, Hospitalization, Disabling, Other)
  Sender: FDA-Public Use
  Company Number: PHHY2014FR015189

PATIENT
  Age: 63 Year
  Sex: Male
  Weight: 81 kg

DRUGS (8)
  1. GLIVEC [Suspect]
     Indication: CHRONIC MYELOID LEUKAEMIA
     Dosage: 400 MG, DAILY
     Route: 048
     Dates: start: 20111230
  2. VENLAFAXINE [Suspect]
     Dosage: 37.5 MG, DAILY
     Route: 048
  3. PROCORALAN [Suspect]
     Dosage: 7.5 MG, BID
     Route: 048
     Dates: start: 20121102
  4. TAHOR [Suspect]
     Dosage: 80 MG, QD
     Route: 048
  5. SPIRIVA [Suspect]
     Dosage: UNK UKN, UNK
     Route: 055
  6. AMLODIPINE [Suspect]
     Dosage: 5 MG, QD
     Route: 048
  7. SERETIDE [Suspect]
     Dosage: UNK UKN, UNK
     Route: 055
  8. PREVISCAN [Suspect]
     Dosage: 20 MG, (AS NEEDE ACC TO INR)
     Route: 048

REACTIONS (5)
  - Large cell lung cancer metastatic [Not Recovered/Not Resolved]
  - Metastases to central nervous system [Unknown]
  - Balance disorder [Unknown]
  - Muscular weakness [Unknown]
  - Second primary malignancy [Unknown]
